FAERS Safety Report 7444833-6 (Version None)
Quarter: 2011Q2

REPORT INFORMATION
  Report Type: 
  Country: None (occurrence: None)
  Receive Date: 20110426
  Receipt Date: 20110426
  Transmission Date: 20111010
  Serious: No
  Sender: FDA-Public Use
  Company Number: None

PATIENT
  Age: 57 Year
  Sex: Female
  Weight: 106.1417 kg

DRUGS (1)
  1. ARIPIPRAZOLE [Suspect]
     Indication: ANTIDEPRESSANT THERAPY
     Dosage: 25MG 1 PER DAY PO
     Route: 048
     Dates: start: 20090721, end: 20091219

REACTIONS (1)
  - MUSCLE SPASMS [None]
